FAERS Safety Report 6204499-X (Version None)
Quarter: 2009Q2

REPORT INFORMATION
  Report Type: 
  Country: None (occurrence: None)
  Receive Date: 20090522
  Receipt Date: 20090511
  Transmission Date: 20091009
  Serious: Yes (Hospitalization, Other)
  Sender: FDA-Public Use
  Company Number: 430033K09USA

PATIENT
  Age: 17 Year
  Sex: Female

DRUGS (2)
  1. NOVANTRONE [Suspect]
     Indication: OFF LABEL USE
     Dosage: 1 IN 3 MONTHS
     Dates: start: 20090116
  2. BETASERON [Concomitant]

REACTIONS (2)
  - CEREBROVASCULAR ACCIDENT [None]
  - OFF LABEL USE [None]
